FAERS Safety Report 5094653-5 (Version None)
Quarter: 2006Q3

REPORT INFORMATION
  Report Type: 
  Country: None (occurrence: None)
  Receive Date: 20060830
  Receipt Date: 20060816
  Transmission Date: 20061208
  Serious: Yes (Other)
  Sender: FDA-Public Use
  Company Number: US-CVT-061741

PATIENT
  Age: 61 Year
  Sex: Female
  Weight: 88.4 kg

DRUGS (34)
  1. RANEXA [Suspect]
     Indication: ANGINA PECTORIS
     Dosage: 500 MG, SINGLE, ORAL
     Route: 048
     Dates: start: 20060801, end: 20060801
  2. ACIPHEX [Concomitant]
  3. COZAAR [Concomitant]
  4. ESTRACE [Concomitant]
  5. BAZA (MICONAZOLE NITRATE) [Concomitant]
  6. BACITRACIN [Concomitant]
  7. PHENERGAN [Concomitant]
  8. MACROBID [Concomitant]
  9. NORCO [Concomitant]
  10. LORTAB [Concomitant]
  11. DARVOCET [Concomitant]
  12. DEMEROL [Concomitant]
  13. FENTANYL [Concomitant]
  14. ALBUTEROL [Concomitant]
  15. NITROLINGUAL-PUMPSPRAY (GLYCERYL TRINITRATE) [Concomitant]
  16. EPIPEN (EPINEPHRINE) [Concomitant]
  17. BENADRYL [Concomitant]
  18. RHINARIS (MACROGOL, PROPYLENE GLYCOL) [Concomitant]
  19. COUMADIN [Concomitant]
  20. IMDUR [Concomitant]
  21. ASPIRIN [Concomitant]
  22. SYNTHROID [Concomitant]
  23. ANTIVERT [Concomitant]
  24. LASIX [Concomitant]
  25. LIPITOR [Concomitant]
  26. TUMS (CALCIUM CARBONATE) [Concomitant]
  27. LEXAPRO (ESCITALOPRAM OXALATE) [Concomitant]
  28. NASACORT AQ (TRIAMCINOLONE ACETONIDE) [Concomitant]
  29. CLARINEX [Concomitant]
  30. HUMIBID (GUAIFENESIN) [Concomitant]
  31. TOPROL-XL [Concomitant]
  32. HYDRALAZINE [Concomitant]
  33. XANAX [Concomitant]
  34. CLONOPIN [Concomitant]

REACTIONS (5)
  - CYANOSIS [None]
  - HYPERSENSITIVITY [None]
  - PHARYNGEAL OEDEMA [None]
  - SWOLLEN TONGUE [None]
  - THROAT TIGHTNESS [None]
